FAERS Safety Report 8856993 (Version 2)
Quarter: 2012Q4

REPORT INFORMATION
  Report Type: 
  Country: US (occurrence: US)
  Receive Date: 20121023
  Receipt Date: 20121204
  Transmission Date: 20130627
  Serious: No
  Sender: FDA-Public Use
  Company Number: US-AMGEN-USASP2012055823

PATIENT
  Age: 56 Year
  Sex: Female
  Weight: 80.27 kg

DRUGS (6)
  1. ENBREL [Suspect]
     Indication: RHEUMATOID ARTHRITIS
     Dosage: 50 mg, qwk
     Route: 058
     Dates: start: 2007, end: 20120717
  2. METHOTREXATE [Concomitant]
     Indication: RHEUMATOID ARTHRITIS
     Dosage: 50 mg, qwk
     Route: 048
  3. FOLIC ACID [Concomitant]
     Indication: RHEUMATOID ARTHRITIS
     Dosage: 1 mg, bid
     Route: 048
  4. NOVOLOG [Concomitant]
     Dosage: UNK
  5. TRAMADOL [Concomitant]
     Indication: RHEUMATOID ARTHRITIS
     Dosage: 50 mg, qid
     Route: 048
  6. BUMEX [Concomitant]
     Dosage: UNK

REACTIONS (1)
  - Latent tuberculosis [Not Recovered/Not Resolved]
